FAERS Safety Report 5952347-5 (Version None)
Quarter: 2008Q4

REPORT INFORMATION
  Report Type: 
  Country: None (occurrence: None)
  Receive Date: 20081113
  Receipt Date: 20081104
  Transmission Date: 20090506
  Serious: Yes (Hospitalization)
  Sender: FDA-Public Use
  Company Number: JP-WATSON-2008-06517

PATIENT
  Age: 40 Year
  Sex: Male

DRUGS (7)
  1. BISOPROLOL FUMARATE AND HYDROCHLOROTHIAZIDE [Suspect]
     Indication: HYPERTENSION
     Dosage: 2.5 MG, UNK
  2. DOXAZOSIN (WATSON LABORATORIES) [Suspect]
     Indication: HYPERTENSION
     Dosage: 8 MG, UNK
  3. DOXAZOSIN (WATSON LABORATORIES) [Suspect]
     Dosage: 2 MG, UNK
  4. AMLODIPINE BESYLATE [Suspect]
     Indication: HYPERTENSION
     Dosage: 10 MG, UNK
  5. AMLODIPINE BESYLATE [Suspect]
     Dosage: 5 MG, DAILY
  6. METHYLDOPA [Suspect]
     Indication: HYPERTENSION
     Dosage: 1000 MG, UNK
  7. LOSARTAN POTASSIUM [Suspect]
     Indication: HYPERTENSION
     Dosage: 25 MG, UNK

REACTIONS (3)
  - GLOMERULONEPHROPATHY [None]
  - HYPOPERFUSION [None]
  - KIDNEY FIBROSIS [None]
